FAERS Safety Report 13209127 (Version 2)
Quarter: 2017Q1

REPORT INFORMATION
  Report Type: Spontaneous
  Country: JP (occurrence: JP)
  Receive Date: 20170209
  Receipt Date: 20170317
  Transmission Date: 20170428
  Serious: Yes (Hospitalization)
  Sender: FDA-Public Use
  Company Number: JP-PFIZER INC-2017057574

PATIENT
  Age: 64 Year
  Sex: Female

DRUGS (6)
  1. MERISLON [Concomitant]
     Active Substance: BETAHISTINE MESILATE
     Indication: DIZZINESS
     Dosage: 6 MG, 3X/DAY
     Route: 048
     Dates: start: 20161228, end: 20170103
  2. CEPHADOL [Concomitant]
     Active Substance: DIPHENIDOL HYDROCHLORIDE
     Indication: DIZZINESS
     Dosage: 25 MG, 3X/DAY
     Route: 048
     Dates: start: 20161228, end: 20170103
  3. CELECOX [Concomitant]
     Active Substance: CELECOXIB
     Route: 048
  4. LYRICA [Suspect]
     Active Substance: PREGABALIN
     Dosage: UNK
     Route: 048
     Dates: start: 2013
  5. EPADEL /01682401/ [Concomitant]
     Active Substance: ICOSAPENT
     Route: 048
  6. AMLODIPINE BESILATE [Suspect]
     Active Substance: AMLODIPINE BESYLATE
     Indication: HYPERTENSION
     Dosage: 5 MG, 1X/DAY
     Route: 048
     Dates: start: 20161228

REACTIONS (3)
  - Vestibular neuronitis [Not Recovered/Not Resolved]
  - Hypertension [Unknown]
  - Influenza [Unknown]

NARRATIVE: CASE EVENT DATE: 20161227
